FAERS Safety Report 23218376 (Version 1)
Quarter: 2023Q4

REPORT INFORMATION
  Report Type: Spontaneous
  Country: US (occurrence: US)
  Receive Date: 20231122
  Receipt Date: 20231122
  Transmission Date: 20240110
  Serious: No
  Sender: FDA-Public Use
  Company Number: US-BEH-2023165530

PATIENT
  Age: 61 Year
  Sex: Female

DRUGS (47)
  1. BERINERT [Suspect]
     Active Substance: HUMAN C1-ESTERASE INHIBITOR
     Indication: Hereditary angioedema
     Dosage: UNK
     Route: 065
     Dates: start: 20230820
  2. BERINERT [Suspect]
     Active Substance: HUMAN C1-ESTERASE INHIBITOR
     Indication: Hereditary angioedema
     Dosage: UNK
     Route: 065
     Dates: start: 20230820
  3. TAKHZYRO [Suspect]
     Active Substance: LANADELUMAB-FLYO
     Indication: Immune system disorder
     Dosage: 300 MILLIGRAM, QOW
     Route: 058
     Dates: start: 20181212
  4. TAKHZYRO [Suspect]
     Active Substance: LANADELUMAB-FLYO
     Indication: Hereditary angioedema
     Dosage: 300 MILLIGRAM, QOW
     Route: 058
     Dates: start: 20181217
  5. TAKHZYRO [Suspect]
     Active Substance: LANADELUMAB-FLYO
     Dosage: 300 MILLIGRAM, QOW
     Route: 058
     Dates: start: 201812
  6. TAKHZYRO [Suspect]
     Active Substance: LANADELUMAB-FLYO
     Dosage: 300 MILLIGRAM, QOW
     Route: 058
     Dates: start: 2018
  7. TAKHZYRO [Suspect]
     Active Substance: LANADELUMAB-FLYO
     Dosage: 300 MILLIGRAM, QOW
     Route: 058
     Dates: start: 20210909
  8. TAKHZYRO [Suspect]
     Active Substance: LANADELUMAB-FLYO
     Dosage: UNK
     Route: 065
     Dates: start: 20210221
  9. TAKHZYRO [Suspect]
     Active Substance: LANADELUMAB-FLYO
     Dosage: 2 MILLILITER
     Route: 058
  10. TAKHZYRO [Suspect]
     Active Substance: LANADELUMAB-FLYO
     Dosage: 30 MILLIGRAM
     Route: 057
     Dates: start: 202202
  11. TAKHZYRO [Suspect]
     Active Substance: LANADELUMAB-FLYO
     Dosage: 300 MILLIGRAM, QOW
     Route: 058
  12. FIRAZYR [Suspect]
     Active Substance: ICATIBANT ACETATE
     Indication: Immune system disorder
     Dosage: 30 MILLIGRAM, PRN
     Route: 058
     Dates: start: 202202
  13. FIRAZYR [Suspect]
     Active Substance: ICATIBANT ACETATE
     Indication: Hereditary angioedema
     Dosage: 1 DOSE
     Route: 065
     Dates: start: 20221218
  14. FIRAZYR [Suspect]
     Active Substance: ICATIBANT ACETATE
     Indication: Hereditary angioedema
     Dosage: 1 DOSE
     Route: 065
     Dates: start: 202301
  15. FIRAZYR [Suspect]
     Active Substance: ICATIBANT ACETATE
     Dosage: 1 DOSE
     Route: 065
     Dates: start: 20230716
  16. FIRAZYR [Suspect]
     Active Substance: ICATIBANT ACETATE
     Dosage: 1 DOSE
     Route: 065
     Dates: start: 20230717
  17. FIRAZYR [Suspect]
     Active Substance: ICATIBANT ACETATE
     Dosage: 1 DOSE
     Route: 065
     Dates: start: 20230718
  18. FIRAZYR [Suspect]
     Active Substance: ICATIBANT ACETATE
     Dosage: 1 DOSE
     Route: 065
     Dates: start: 20230719
  19. FIRAZYR [Suspect]
     Active Substance: ICATIBANT ACETATE
     Dosage: 1 DOSE
     Route: 065
     Dates: start: 20230722
  20. FIRAZYR [Suspect]
     Active Substance: ICATIBANT ACETATE
     Dosage: 1 DOSE
     Route: 065
     Dates: start: 20230725
  21. FIRAZYR [Suspect]
     Active Substance: ICATIBANT ACETATE
     Dosage: 1 DOSE
     Route: 065
     Dates: start: 20230729
  22. FIRAZYR [Suspect]
     Active Substance: ICATIBANT ACETATE
     Dosage: 1 DOSE
     Route: 065
     Dates: start: 20230731
  23. FIRAZYR [Suspect]
     Active Substance: ICATIBANT ACETATE
     Dosage: 1 DOSE
     Route: 065
     Dates: start: 20230801
  24. FIRAZYR [Suspect]
     Active Substance: ICATIBANT ACETATE
     Dosage: UNK
     Route: 065
     Dates: start: 202308
  25. FIRAZYR [Suspect]
     Active Substance: ICATIBANT ACETATE
     Dosage: 1 DOSE
     Route: 065
     Dates: start: 20230810
  26. FIRAZYR [Suspect]
     Active Substance: ICATIBANT ACETATE
     Dosage: 1 DOSE
     Route: 065
     Dates: start: 20230805
  27. FIRAZYR [Suspect]
     Active Substance: ICATIBANT ACETATE
     Dosage: 1 DOSE
     Route: 065
     Dates: start: 20230806
  28. FIRAZYR [Suspect]
     Active Substance: ICATIBANT ACETATE
     Dosage: 1 DOSE
     Route: 065
     Dates: start: 20230809
  29. FIRAZYR [Suspect]
     Active Substance: ICATIBANT ACETATE
     Dosage: 1 DOSE
     Route: 065
     Dates: start: 20230814
  30. FIRAZYR [Suspect]
     Active Substance: ICATIBANT ACETATE
     Dosage: 1 DOSE
     Route: 065
     Dates: start: 20230815
  31. FIRAZYR [Suspect]
     Active Substance: ICATIBANT ACETATE
     Dosage: 1 DOSE
     Route: 065
     Dates: start: 20230816
  32. FIRAZYR [Suspect]
     Active Substance: ICATIBANT ACETATE
     Dosage: 1 DOSE
     Route: 065
     Dates: start: 20230818
  33. FIRAZYR [Suspect]
     Active Substance: ICATIBANT ACETATE
     Dosage: 1 DOSE
     Route: 065
     Dates: start: 20230819
  34. FIRAZYR [Suspect]
     Active Substance: ICATIBANT ACETATE
     Dosage: 1 DOSE
     Route: 065
     Dates: start: 20230823
  35. FIRAZYR [Suspect]
     Active Substance: ICATIBANT ACETATE
     Dosage: 1 DOSE
     Route: 065
     Dates: start: 20230824
  36. FIRAZYR [Suspect]
     Active Substance: ICATIBANT ACETATE
     Dosage: 1 DOSE
     Route: 065
     Dates: start: 20230825
  37. FIRAZYR [Suspect]
     Active Substance: ICATIBANT ACETATE
     Dosage: 1 DOSE
     Route: 065
     Dates: start: 20230828
  38. DANAZOL [Concomitant]
     Active Substance: DANAZOL
     Dosage: UNK, TID
  39. XANAX [Concomitant]
     Active Substance: ALPRAZOLAM
     Indication: Hereditary angioedema
     Dosage: 1 DOSE
     Dates: start: 20230824
  40. XANAX [Concomitant]
     Active Substance: ALPRAZOLAM
     Dosage: 1 DOSE
     Dates: start: 20230825
  41. XANAX [Concomitant]
     Active Substance: ALPRAZOLAM
     Dosage: 1 DOSE
     Dates: start: 20230827
  42. XANAX [Concomitant]
     Active Substance: ALPRAZOLAM
     Dosage: 1 DOSE
     Dates: start: 20230828
  43. XANAX [Concomitant]
     Active Substance: ALPRAZOLAM
     Dosage: 1 DOSE
     Dates: start: 20230829
  44. XANAX [Concomitant]
     Active Substance: ALPRAZOLAM
     Dosage: 1 DOSE
     Dates: start: 20230830
  45. XANAX [Concomitant]
     Active Substance: ALPRAZOLAM
     Dosage: 1 DOSE
     Dates: start: 20230831
  46. XANAX [Concomitant]
     Active Substance: ALPRAZOLAM
     Dosage: 1 DOSE
     Dates: start: 20230901
  47. XANAX [Concomitant]
     Active Substance: ALPRAZOLAM
     Dosage: 1 DOSE
     Dates: start: 20230902

REACTIONS (1)
  - Headache [Unknown]
